FAERS Safety Report 5896295-8 (Version None)
Quarter: 2008Q3

REPORT INFORMATION
  Report Type: 
  Country: None (occurrence: None)
  Receive Date: 20080924
  Receipt Date: 20071029
  Transmission Date: 20090109
  Serious: Yes (Other)
  Sender: FDA-Public Use
  Company Number: US-ASTRAZENECA-2007UW19007

PATIENT
  Sex: Male
  Weight: 113.4 kg

DRUGS (9)
  1. SEROQUEL [Suspect]
     Indication: BIPOLAR DISORDER
     Route: 048
     Dates: start: 19980116, end: 20010101
  2. SEROQUEL [Suspect]
     Indication: SCHIZOPHRENIA
     Route: 048
     Dates: start: 19980116, end: 20010101
  3. SEROQUEL [Suspect]
     Indication: ANXIETY
     Route: 048
     Dates: start: 19980116, end: 20010101
  4. RISPERDAL [Concomitant]
     Indication: DEPRESSION
     Dates: start: 19980101
  5. ZYPREXA [Concomitant]
     Indication: DEPRESSION
  6. ZYPREXA [Concomitant]
     Indication: ANXIETY
  7. HALDOL [Concomitant]
     Dates: start: 19780101
  8. STELAZINE [Concomitant]
     Dates: start: 19780101
  9. THORAZINE [Concomitant]
     Dates: start: 19780101

REACTIONS (3)
  - DIABETES MELLITUS [None]
  - DIABETIC COMA [None]
  - KETOACIDOSIS [None]
